FAERS Safety Report 4490872-7 (Version None)
Quarter: 2004Q4

REPORT INFORMATION
  Report Type: 
  Country: None (occurrence: None)
  Receive Date: 20041027
  Receipt Date: 20041014
  Transmission Date: 20050328
  Serious: Yes (Death, Hospitalization)
  Sender: FDA-Public Use
  Company Number: 2004071147

PATIENT
  Age: 44 Year
  Sex: Female

DRUGS (7)
  1. LIPITOR [Suspect]
     Indication: DYSLIPIDAEMIA
     Dosage: 20 MG (20 MG, 1 IN 1 D), ORAL
     Route: 048
     Dates: start: 20040812, end: 20040927
  2. CLOPIDOGREL BISULFATE [Suspect]
     Indication: CORONARY ARTERY DISEASE
     Dosage: 75 MG, ORAL
     Route: 048
     Dates: start: 20040923, end: 20040927
  3. VALSARTAN (VALSARTAN) [Concomitant]
  4. GLIMEPIRIDE [Concomitant]
  5. MOSILDOMINE (CORVASAL) (MOLSIDOMINE) [Concomitant]
  6. ASPIRIN [Concomitant]
  7. AMLODIPINE BESYLATE [Concomitant]

REACTIONS (4)
  - CORONARY ARTERY DISEASE [None]
  - RENAL FAILURE [None]
  - THROMBOTIC THROMBOCYTOPENIC PURPURA [None]
  - TOXIC EPIDERMAL NECROLYSIS [None]
